FAERS Safety Report 4317427-9 (Version None)
Quarter: 2004Q1

REPORT INFORMATION
  Report Type: 
  Country: None (occurrence: None)
  Receive Date: 20040312
  Receipt Date: 20040308
  Transmission Date: 20041129
  Serious: Yes (Hospitalization)
  Sender: FDA-Public Use
  Company Number: 200410098BYL

PATIENT
  Age: 62 Year
  Sex: Male
  Weight: 60 kg

DRUGS (5)
  1. ASPIRIN [Suspect]
     Indication: ATRIAL FIBRILLATION
     Dosage: 100 MG, QD, ORAL
     Route: 048
     Dates: end: 20040220
  2. LOPRESSOR [Concomitant]
  3. GASTER [Concomitant]
  4. PURSENNID [Concomitant]
  5. CIBENOL [Concomitant]

REACTIONS (4)
  - BLOOD PRESSURE DECREASED [None]
  - CEREBRAL HAEMORRHAGE [None]
  - LOSS OF CONSCIOUSNESS [None]
  - SOMNOLENCE [None]
